FAERS Safety Report 12649436 (Version 2)
Quarter: 2016Q3

REPORT INFORMATION
  Report Type: Report from Study
  Country: IN (occurrence: IN)
  Receive Date: 20160812
  Receipt Date: 20160816
  Transmission Date: 20161109
  Serious: Yes (Hospitalization)
  Sender: FDA-Public Use
  Company Number: IN-BAXTER-2016BAX037434

PATIENT
  Age: 16 Year
  Sex: Male

DRUGS (1)
  1. DIANEAL PD-2 PERITONEAL DIALYSIS SOLUTION WITH DEXTROSE [Suspect]
     Active Substance: CALCIUM CHLORIDE\DEXTROSE\MAGNESIUM CHLORIDE\SODIUM CHLORIDE\SODIUM LACTATE
     Indication: PERITONEAL DIALYSIS
     Route: 033
     Dates: start: 20160328

REACTIONS (4)
  - Procedural complication [Recovering/Resolving]
  - Fluid overload [Recovered/Resolved]
  - Peritonitis [Recovered/Resolved]
  - Respiratory disorder [Recovering/Resolving]

NARRATIVE: CASE EVENT DATE: 201607
